FAERS Safety Report 9118329 (Version 1)
Quarter: 2013Q3

REPORT INFORMATION
  Report Type: Spontaneous
  Country: US (occurrence: None)
  Receive Date: 20130221
  Receipt Date: 20130221
  Transmission Date: 20140515
  Serious: Yes (Hospitalization)
  Sender: FDA-Public Use
  Company Number: None

PATIENT
  Age: 61 Year
  Sex: Female
  Weight: 54.4 kg

DRUGS (14)
  1. CABOZANTINIB [Suspect]
     Indication: METASTATIC CARCINOID TUMOUR
     Route: 048
     Dates: start: 20121212, end: 20130219
  2. ALDACTONE [Concomitant]
  3. CREON 12 [Concomitant]
  4. OPIUM [Concomitant]
  5. DICLOFENAC PROPIONATE [Concomitant]
  6. PUROSEMIUDE [Concomitant]
  7. LANTUS SOLOSTAR PEN [Concomitant]
  8. MULTIVITAMIN CLIXIR [Concomitant]
  9. PREDNISONE [Concomitant]
  10. SIMVASTATIN [Concomitant]
  11. VITAMIN D3 [Concomitant]
  12. FERRLECIT [Concomitant]
  13. OCTREOTIDE LAR [Concomitant]
  14. ZOMETA [Concomitant]

REACTIONS (5)
  - Convulsion [None]
  - Mental status changes [None]
  - Hemiparesis [None]
  - Central nervous system lesion [None]
  - Neuroendocrine tumour [None]
